FAERS Safety Report 5402282-6 (Version None)
Quarter: 2007Q3

REPORT INFORMATION
  Report Type: 
  Country: None (occurrence: None)
  Receive Date: 20070801
  Receipt Date: 20070727
  Transmission Date: 20080115
  Serious: Yes (Hospitalization)
  Sender: FDA-Public Use
  Company Number: DE-BAYER-200610308BVD

PATIENT
  Age: 62 Year
  Sex: Male
  Weight: 94 kg

DRUGS (6)
  1. SORAFENIB [Suspect]
     Indication: HEPATIC NEOPLASM MALIGNANT
     Dosage: TOTAL DAILY DOSE: 800 MG
     Route: 048
     Dates: start: 20060130, end: 20060306
  2. MARCUMAR [Concomitant]
     Route: 048
     Dates: start: 20000101
  3. CLEXANE [Concomitant]
     Route: 065
     Dates: start: 20060101
  4. PANTOPRAZOLE SODIUM [Concomitant]
     Route: 065
     Dates: start: 20060118
  5. ENALAPRIL MALEATE [Concomitant]
     Route: 065
     Dates: start: 20060101
  6. METOPROLOL SUCCINATE [Concomitant]
     Route: 065
     Dates: start: 20051001

REACTIONS (2)
  - FATIGUE [None]
  - GENERAL PHYSICAL HEALTH DETERIORATION [None]
